FAERS Safety Report 8832778 (Version 1)
Quarter: 2012Q4

REPORT INFORMATION
  Report Type: Spontaneous
  Country: US (occurrence: None)
  Receive Date: 20121009
  Receipt Date: 20121009
  Transmission Date: 20130627
  Serious: No
  Sender: FDA-Public Use
  Company Number: None

PATIENT
  Age: 63 Year
  Sex: Female

DRUGS (1)
  1. BUPROPION [Suspect]
     Indication: PRODUCT USED FOR UNKNOWN INDICATION
     Route: 048
     Dates: start: 201207, end: 201210

REACTIONS (7)
  - Product quality issue [None]
  - Anxiety [None]
  - Weight decreased [None]
  - Decreased appetite [None]
  - Insomnia [None]
  - Palpitations [None]
  - Cardiomyopathy [None]
